FAERS Safety Report 22331273 (Version 1)
Quarter: 2023Q2

REPORT INFORMATION
  Report Type: Spontaneous
  Country: US (occurrence: US)
  Receive Date: 20230517
  Receipt Date: 20230517
  Transmission Date: 20230722
  Serious: Yes (Other)
  Sender: FDA-Public Use
  Company Number: US-PFIZER INC-PV202300085074

PATIENT
  Sex: Female

DRUGS (1)
  1. DEMEROL [Suspect]
     Active Substance: MEPERIDINE HYDROCHLORIDE
     Indication: Pain management
     Dosage: UNK

REACTIONS (3)
  - Pulmonary thrombosis [Unknown]
  - Product supply issue [Unknown]
  - Product dose omission issue [Unknown]
